FAERS Safety Report 10208453 (Version 2)
Quarter: 2014Q2

REPORT INFORMATION
  Report Type: Spontaneous
  Country: US (occurrence: US)
  Receive Date: 20140530
  Receipt Date: 20140530
  Transmission Date: 20141212
  Serious: No
  Sender: FDA-Public Use
  Company Number: US-ENDO PHARMACEUTICALS INC.-SPLN20130042

PATIENT
  Sex: Female
  Weight: 39.3 kg

DRUGS (16)
  1. SUPPRELIN LA [Suspect]
     Indication: PRECOCIOUS PUBERTY
     Route: 058
     Dates: start: 20130128
  2. SUPPRELIN LA [Suspect]
     Route: 058
     Dates: start: 201009
  3. SUPPRELIN LA [Suspect]
     Route: 058
  4. SINGULAIR [Concomitant]
     Indication: PRODUCT USED FOR UNKNOWN INDICATION
     Route: 048
  5. OMNICEF [Concomitant]
     Indication: PRODUCT USED FOR UNKNOWN INDICATION
     Route: 048
  6. ADVAIR [Concomitant]
     Indication: PRODUCT USED FOR UNKNOWN INDICATION
     Dosage: 200-100MCG/DOSE
     Route: 048
  7. XYZAL [Concomitant]
     Indication: PRODUCT USED FOR UNKNOWN INDICATION
     Route: 048
  8. PROVENTIL HFA [Concomitant]
     Indication: PRODUCT USED FOR UNKNOWN INDICATION
  9. MOMETASONE [Concomitant]
     Indication: PRODUCT USED FOR UNKNOWN INDICATION
     Route: 045
  10. AZELASTINE [Concomitant]
     Indication: PRODUCT USED FOR UNKNOWN INDICATION
     Route: 045
  11. PATADAY [Concomitant]
     Indication: PRODUCT USED FOR UNKNOWN INDICATION
     Dosage: 2 DROPS
     Route: 047
  12. MYCOSTATIN [Concomitant]
     Indication: PRODUCT USED FOR UNKNOWN INDICATION
     Dosage: 100,000G/UNIT
     Route: 061
  13. MOTRIN IB [Concomitant]
     Indication: MIGRAINE
     Route: 048
  14. MELATONIN [Concomitant]
     Indication: MIGRAINE
     Route: 048
  15. MULTIVITAMINS [Concomitant]
     Indication: VITAMIN SUPPLEMENTATION
     Dosage: UNKNOWN
     Route: 048
  16. STRATTERA [Concomitant]
     Indication: PRODUCT USED FOR UNKNOWN INDICATION
     Dosage: UNKNOWN
     Route: 048

REACTIONS (2)
  - Implant site pain [Not Recovered/Not Resolved]
  - Drug ineffective [Not Recovered/Not Resolved]
